FAERS Safety Report 23077102 (Version 3)
Quarter: 2023Q4

REPORT INFORMATION
  Report Type: Report from Study
  Country: US (occurrence: US)
  Receive Date: 20231018
  Receipt Date: 20231122
  Transmission Date: 20240109
  Serious: Yes (Death, Hospitalization)
  Sender: FDA-Public Use
  Company Number: US-DECIPHERA PHARMACEUTICALS LLC-2023US000928

PATIENT
  Age: 88 Year
  Sex: Male

DRUGS (2)
  1. QINLOCK [Suspect]
     Active Substance: RIPRETINIB
     Indication: Gastrointestinal stromal tumour
     Dosage: 100 MILLIGRAM, QD
     Route: 048
     Dates: start: 20230818, end: 2023
  2. QINLOCK [Suspect]
     Active Substance: RIPRETINIB
     Dosage: 100 MILLIGRAM, QD
     Route: 048
     Dates: start: 2023, end: 2023

REACTIONS (6)
  - Death [Fatal]
  - Atrial fibrillation [Unknown]
  - Pulmonary oedema [Unknown]
  - Surgery [Unknown]
  - Cardiac failure [Unknown]
  - Underdose [Unknown]

NARRATIVE: CASE EVENT DATE: 20230101
